FAERS Safety Report 13665689 (Version 1)
Quarter: 2017Q2

REPORT INFORMATION
  Report Type: Spontaneous
  Country: GB (occurrence: GB)
  Receive Date: 20170619
  Receipt Date: 20170619
  Transmission Date: 20170830
  Serious: Yes (Life-Threatening, Hospitalization)
  Sender: FDA-Public Use
  Company Number: GB-NOVOPROD-548907

PATIENT
  Age: 62 Year
  Sex: Female
  Weight: 50.8 kg

DRUGS (2)
  1. VAGIFEM [Suspect]
     Active Substance: ESTRADIOL
     Indication: HORMONE REPLACEMENT THERAPY
     Dosage: 20 ?G, BIW
     Route: 067
     Dates: start: 2014, end: 201702
  2. VAGIFEM [Suspect]
     Active Substance: ESTRADIOL
     Indication: LIBIDO DECREASED
     Dosage: 25 ?G, UNK
     Route: 067
     Dates: end: 2014

REACTIONS (5)
  - Movement disorder [Unknown]
  - Prescribed overdose [Unknown]
  - Ischaemic stroke [Recovering/Resolving]
  - Aphasia [Unknown]
  - Sensory loss [Unknown]

NARRATIVE: CASE EVENT DATE: 20170206
